FAERS Safety Report 23747326 (Version 1)
Quarter: 2024Q2

REPORT INFORMATION
  Report Type: Spontaneous
  Country: FR (occurrence: FR)
  Receive Date: 20240416
  Receipt Date: 20240416
  Transmission Date: 20240715
  Serious: Yes (Disabling)
  Sender: FDA-Public Use
  Company Number: None

PATIENT
  Age: 37 Year
  Sex: Female
  Weight: 79 kg

DRUGS (1)
  1. VOTRIENT [Suspect]
     Active Substance: PAZOPANIB HYDROCHLORIDE
     Indication: Desmoid tumour
     Dosage: 800 MG, QD (800 MG/J)
     Route: 048
     Dates: start: 20210503, end: 202203

REACTIONS (1)
  - Premature menopause [Not Recovered/Not Resolved]

NARRATIVE: CASE EVENT DATE: 20221201
